FAERS Safety Report 8160636-1 (Version None)
Quarter: 2012Q1

REPORT INFORMATION
  Report Type: 
  Country: None (occurrence: None)
  Receive Date: 20120223
  Receipt Date: 20120222
  Transmission Date: 20120608
  Serious: Yes (Other)
  Sender: FDA-Public Use
  Company Number: KE-ROCHE-1042528

PATIENT
  Sex: Male
  Weight: 90 kg

DRUGS (3)
  1. ROSUVASTATIN [Concomitant]
     Indication: DYSLIPIDAEMIA
     Dates: start: 20110816
  2. PEGASYS [Suspect]
     Indication: HEPATITIS B
     Route: 058
     Dates: start: 20111206
  3. TELMISARTAN [Concomitant]
     Indication: HYPERTENSION
     Dates: start: 20110320

REACTIONS (4)
  - PANCYTOPENIA [None]
  - WEIGHT DECREASED [None]
  - LETHARGY [None]
  - LOSS OF LIBIDO [None]
